FAERS Safety Report 23886218 (Version 1)
Quarter: 2024Q2

REPORT INFORMATION
  Report Type: Spontaneous
  Country: CN (occurrence: CN)
  Receive Date: 20240522
  Receipt Date: 20240522
  Transmission Date: 20240717
  Serious: Yes (Death, Other)
  Sender: FDA-Public Use
  Company Number: CN-FreseniusKabi-FK202407785

PATIENT
  Age: 64 Year
  Sex: Male

DRUGS (6)
  1. EGG PHOSPHOLIPIDS\SAFFLOWER OIL\SOYBEAN OIL [Suspect]
     Active Substance: EGG PHOSPHOLIPIDS\SAFFLOWER OIL\SOYBEAN OIL
     Indication: Nutritional supplementation
     Dosage: 20 DROPS/MIN?FORM OF ADMIN: INFUSION
     Dates: start: 20080214, end: 20080214
  2. CEFPIRAMIDE [Concomitant]
     Active Substance: CEFPIRAMIDE
     Indication: Infection prophylaxis
     Dates: start: 20080214
  3. AMBROXOL HYDROCHLORIDE [Concomitant]
     Active Substance: AMBROXOL HYDROCHLORIDE
     Indication: Productive cough
     Dates: start: 20080214
  4. AMBROXOL HYDROCHLORIDE [Concomitant]
     Active Substance: AMBROXOL HYDROCHLORIDE
     Indication: Cough
  5. RINGERS SOLUTION [Concomitant]
     Active Substance: CALCIUM CHLORIDE\POTASSIUM CHLORIDE\SODIUM CHLORIDE
     Indication: Productive cough
     Dosage: 500 ML + 10% KCL 15 ML?20 - 30 DROPS/MIN
     Dates: start: 20080214
  6. RINGERS SOLUTION [Concomitant]
     Active Substance: CALCIUM CHLORIDE\POTASSIUM CHLORIDE\SODIUM CHLORIDE
     Indication: Cough

REACTIONS (1)
  - Pulmonary embolism [Fatal]

NARRATIVE: CASE EVENT DATE: 20080214
